FAERS Safety Report 4385250-5 (Version None)
Quarter: 2004Q2

REPORT INFORMATION
  Report Type: 
  Country: None (occurrence: None)
  Receive Date: 20040625
  Receipt Date: 20040618
  Transmission Date: 20050107
  Serious: Yes (Hospitalization)
  Sender: FDA-Public Use
  Company Number: US-MERCK-0406USA01914

PATIENT
  Age: 89 Year
  Sex: Female

DRUGS (6)
  1. ASPIRIN [Concomitant]
     Route: 065
     Dates: start: 19930101, end: 20040601
  2. COZAAR [Concomitant]
     Route: 048
  3. SINGULAIR [Concomitant]
     Route: 048
  4. VIOXX [Suspect]
     Route: 048
     Dates: start: 20040601, end: 20040616
  5. VIOXX [Suspect]
     Route: 048
     Dates: end: 20040601
  6. ZOCOR [Concomitant]
     Route: 048

REACTIONS (4)
  - DUODENAL ULCER [None]
  - GASTRIC HAEMORRHAGE [None]
  - MEDICATION ERROR [None]
  - OESOPHAGITIS [None]
